FAERS Safety Report 9425665 (Version 1)
Quarter: 2013Q3

REPORT INFORMATION
  Report Type: Spontaneous
  Country: DK (occurrence: DK)
  Receive Date: 20130729
  Receipt Date: 20130729
  Transmission Date: 20140515
  Serious: Yes (Other)
  Sender: FDA-Public Use
  Company Number: DK-MYLANLABS-2013S1016325

PATIENT
  Age: 41 Year
  Sex: Female

DRUGS (9)
  1. DOXORUBICIN [Suspect]
     Indication: EWING^S SARCOMA
     Dosage: 40MG OVER 9 DAYS; SIX CYCLES AT 3-WEEK INTERVALS
     Route: 065
  2. VINCRISTINE [Interacting]
     Indication: EWING^S SARCOMA
     Dosage: SIX CYCLES AT 3-WEEK INTERVALS
     Route: 065
  3. IFOSFAMIDE [Interacting]
     Indication: EWING^S SARCOMA
     Dosage: 6G OVER 9 DAYS; SIX CYCLES AT 3-WEEK INTERVALS
     Route: 065
  4. ETOPOSIDE [Interacting]
     Indication: EWING^S SARCOMA
     Dosage: 900MG OVER 9 DAYS; REDUCED TO 80%, THEN 60% OF INITIAL DOSE; SIX CYCLES AT 3-WEEK INTERVALS
     Route: 065
  5. ETOPOSIDE [Interacting]
     Indication: EWING^S SARCOMA
     Dosage: 80% OF INITIAL DOSE; SIX CYCLES AT 3-WEEK INTERVALS
     Route: 065
  6. ETOPOSIDE [Interacting]
     Indication: EWING^S SARCOMA
     Dosage: 60% OF INITIAL DOSE; SIX CYCLES AT 3-WEEK INTERVALS
     Route: 065
  7. FLUCONAZOLE [Interacting]
     Indication: CANDIDA INFECTION
     Dosage: 100MG X 1; 10-DAY COURSE
     Route: 065
  8. MIRTAZAPINE [Interacting]
     Route: 065
  9. PREDNISOLONE [Interacting]
     Route: 065

REACTIONS (7)
  - Neurotoxicity [Recovering/Resolving]
  - Paraesthesia [Recovering/Resolving]
  - Candida infection [Unknown]
  - Renal impairment [Unknown]
  - Mucosal inflammation [Unknown]
  - Bone marrow failure [Unknown]
  - Drug interaction [Recovering/Resolving]
